FAERS Safety Report 8153045-2 (Version None)
Quarter: 2012Q1

REPORT INFORMATION
  Report Type: 
  Country: None (occurrence: None)
  Receive Date: 20120221
  Receipt Date: 20120214
  Transmission Date: 20120608
  Serious: Yes (Hospitalization, Other)
  Sender: FDA-Public Use
  Company Number: CA-B.I. PHARMACEUTICALS,INC./RIDGEFIELD-2012-CN-00306CN

PATIENT
  Age: 80 Year
  Sex: Female

DRUGS (6)
  1. PRADAXA [Suspect]
     Dosage: 300 MG
     Route: 048
  2. BISOPROLOL FUMARATE [Concomitant]
     Route: 048
  3. ALPRAZOLAM [Concomitant]
     Route: 048
  4. PERINDOPRIL ERBUMINE [Concomitant]
     Route: 048
  5. SYNTHROID [Concomitant]
     Route: 048
  6. DEPO-MEDROL [Concomitant]
     Route: 014

REACTIONS (5)
  - OEDEMA PERIPHERAL [None]
  - RASH [None]
  - GASTROINTESTINAL HAEMORRHAGE [None]
  - MIOSIS [None]
  - SWELLING FACE [None]
